FAERS Safety Report 20541421 (Version 3)
Quarter: 2022Q1

REPORT INFORMATION
  Report Type: Other
  Country: KR (occurrence: KR)
  Receive Date: 20220302
  Receipt Date: 20220317
  Transmission Date: 20220423
  Serious: Yes (Other)
  Sender: FDA-Public Use
  Company Number: KR-002147023-NVSC2022KR042363

PATIENT
  Age: 66 Year
  Sex: Male

DRUGS (1)
  1. RANIBIZUMAB [Suspect]
     Active Substance: RANIBIZUMAB
     Indication: Polypoidal choroidal vasculopathy
     Dosage: 1 DOSAGE FORM, Q4W (THE FIRST 3 DOSES WERE INJECTED AT 4-WEEK INTERVALS)
     Route: 050

REACTIONS (2)
  - Subretinal fluid [Unknown]
  - Disease recurrence [Unknown]
